FAERS Safety Report 22094853 (Version 1)
Quarter: 2023Q1

REPORT INFORMATION
  Report Type: Spontaneous
  Country: FR (occurrence: FR)
  Receive Date: 20230314
  Receipt Date: 20230314
  Transmission Date: 20230418
  Serious: Yes (Hospitalization, Other)
  Sender: FDA-Public Use
  Company Number: None

PATIENT
  Age: 44 Year
  Sex: Female

DRUGS (1)
  1. PEMETREXED [Suspect]
     Active Substance: PEMETREXED
     Indication: Mucoepidermoid carcinoma
     Dosage: 500 MG, UNKNOWN
     Route: 042
     Dates: start: 20220810, end: 20220810

REACTIONS (4)
  - Face oedema [Recovered/Resolved]
  - Erythema [Recovered/Resolved]
  - Pancytopenia [Recovering/Resolving]
  - Dose calculation error [Recovered/Resolved]

NARRATIVE: CASE EVENT DATE: 20220810
